FAERS Safety Report 6111392-X (Version None)
Quarter: 2009Q1

REPORT INFORMATION
  Report Type: 
  Country: None (occurrence: None)
  Receive Date: 20090310
  Receipt Date: 20090310
  Transmission Date: 20090719
  Serious: Yes (Hospitalization)
  Sender: FDA-Public Use
  Company Number: None

PATIENT
  Sex: Female
  Weight: 99.7913 kg

DRUGS (1)
  1. CHANTIX [Suspect]
     Indication: SMOKING CESSATION THERAPY
     Dosage: 1 PILL 2X/DAY PO
     Route: 048
     Dates: start: 20080301, end: 20080407

REACTIONS (5)
  - DIABETES MELLITUS [None]
  - HYPOTHYROIDISM [None]
  - PALPITATIONS [None]
  - WEIGHT DECREASED [None]
  - WEIGHT INCREASED [None]
